FAERS Safety Report 12157067 (Version 1)
Quarter: 2016Q1

REPORT INFORMATION
  Report Type: Spontaneous
  Country: CA (occurrence: CA)
  Receive Date: 20160307
  Receipt Date: 20160307
  Transmission Date: 20160526
  Serious: Yes (Other)
  Sender: FDA-Public Use
  Company Number: CA-ROCHE-1721492

PATIENT
  Age: 62 Year
  Sex: Female

DRUGS (5)
  1. SYMBICORT [Concomitant]
     Active Substance: BUDESONIDE\FORMOTEROL FUMARATE DIHYDRATE
  2. VENTOLINE [Concomitant]
     Active Substance: ALBUTEROL
  3. XOLAIR [Suspect]
     Active Substance: OMALIZUMAB
     Indication: ASTHMA
     Route: 058
     Dates: start: 20140130
  4. ALVESCO [Concomitant]
     Active Substance: CICLESONIDE
  5. MONTELUKAST [Concomitant]
     Active Substance: MONTELUKAST SODIUM

REACTIONS (5)
  - Bronchitis [Unknown]
  - Drug ineffective [Unknown]
  - Lung infection [Unknown]
  - Sinusitis [Unknown]
  - Productive cough [Unknown]

NARRATIVE: CASE EVENT DATE: 201408
